FAERS Safety Report 8037225-2 (Version None)
Quarter: 2012Q1

REPORT INFORMATION
  Report Type: 
  Country: None (occurrence: None)
  Receive Date: 20120109
  Receipt Date: 20111226
  Transmission Date: 20120608
  Serious: Yes (Other)
  Sender: FDA-Public Use
  Company Number: 1150213

PATIENT
  Age: 62 Year
  Sex: Male

DRUGS (3)
  1. VECURONIUM BROMIDE [Suspect]
     Indication: ENDOTRACHEAL INTUBATION
  2. (CORTICOSTEROIDS) [Suspect]
     Indication: ACUTE RESPIRATORY DISTRESS SYNDROME
     Dosage: INTRAVENOUS (NOT OTHERWISE SPECIFIED)
     Route: 042
  3. AMIODARONE HCL [Concomitant]

REACTIONS (3)
  - CEREBROVASCULAR ACCIDENT [None]
  - MYOPATHY [None]
  - QUADRIPLEGIA [None]
